FAERS Safety Report 16880298 (Version 1)
Quarter: 2019Q4

REPORT INFORMATION
  Report Type: Report from Study
  Country: US (occurrence: US)
  Receive Date: 20191003
  Receipt Date: 20191003
  Transmission Date: 20200122
  Serious: No
  Sender: FDA-Public Use
  Company Number: US-ALEXION PHARMACEUTICALS INC.-A201914264

PATIENT
  Sex: Female

DRUGS (5)
  1. CALCIUM [Suspect]
     Active Substance: CALCIUM
     Indication: MINERAL SUPPLEMENTATION
     Dosage: UNK
     Route: 065
  2. VITAMIN B12 [Concomitant]
     Active Substance: CYANOCOBALAMIN
     Indication: PRODUCT USED FOR UNKNOWN INDICATION
     Dosage: UNK
     Route: 065
  3. STRENSIQ [Suspect]
     Active Substance: ASFOTASE ALFA
     Indication: PRODUCT USED FOR UNKNOWN INDICATION
     Dosage: UNK, Q3W
     Route: 058
  4. STRENSIQ [Suspect]
     Active Substance: ASFOTASE ALFA
     Dosage: UNK, Q3W
     Route: 058
  5. STRENSIQ [Suspect]
     Active Substance: ASFOTASE ALFA
     Dosage: UNK, Q3W
     Route: 058

REACTIONS (4)
  - Osteoporosis [Unknown]
  - Feeling abnormal [Unknown]
  - Vitamin B6 decreased [Unknown]
  - Bone density abnormal [Unknown]

NARRATIVE: CASE EVENT DATE: 20190912
